FAERS Safety Report 19749313 (Version 1)
Quarter: 2021Q3

REPORT INFORMATION
  Report Type: Spontaneous
  Country: US (occurrence: US)
  Receive Date: 20210826
  Receipt Date: 20210826
  Transmission Date: 20211014
  Serious: Yes (Hospitalization, Other)
  Sender: FDA-Public Use
  Company Number: US-SUN PHARMACEUTICAL INDUSTRIES LTD-2021R1-309109

PATIENT
  Sex: Male

DRUGS (3)
  1. TINIDAZOLE. [Interacting]
     Active Substance: TINIDAZOLE
     Indication: LYME DISEASE
     Dosage: 500 MILLIGRAM, BID
     Route: 065
  2. MINOCYCLINE [Suspect]
     Active Substance: MINOCYCLINE HYDROCHLORIDE
     Indication: LYME DISEASE
     Dosage: 100 MILLIGRAM, BID
     Route: 065
  3. DISULFIRAM. [Interacting]
     Active Substance: DISULFIRAM
     Indication: LYME DISEASE
     Dosage: 375 MILLIGRAM, DAILY
     Route: 065

REACTIONS (7)
  - Mental status changes [Unknown]
  - Toxicity to various agents [Unknown]
  - Drug interaction [Unknown]
  - Nerve injury [Unknown]
  - Overdose [Unknown]
  - Seizure like phenomena [Unknown]
  - Metabolic acidosis [Unknown]
